FAERS Safety Report 14078504 (Version 1)
Quarter: 2017Q4

REPORT INFORMATION
  Report Type: Other
  Country: SE (occurrence: SE)
  Receive Date: 20171012
  Receipt Date: 20171012
  Transmission Date: 20180321
  Serious: Yes (Death)
  Sender: FDA-Public Use
  Company Number: SE-ACI HEALTHCARE LIMITED-2029763

PATIENT

DRUGS (3)
  1. 2-ETHYLIDENE-1, 5-DIMETHYL-3, 3-DIPHENYLPYRROLIDINE (EDDP) [Suspect]
     Active Substance: METHADONE HYDROCHLORIDE
     Route: 065
  2. METHADONE [Suspect]
     Active Substance: METHADONE HYDROCHLORIDE
     Route: 065
  3. GABAPENTIN. [Suspect]
     Active Substance: GABAPENTIN
     Indication: PRODUCT USED FOR UNKNOWN INDICATION
     Route: 065

REACTIONS (1)
  - Toxicity to various agents [Fatal]
